FAERS Safety Report 25214929 (Version 2)
Quarter: 2025Q2

REPORT INFORMATION
  Report Type: Spontaneous
  Country: TW (occurrence: TW)
  Receive Date: 20250418
  Receipt Date: 20250430
  Transmission Date: 20250717
  Serious: Yes (Death, Other)
  Sender: BIOMARIN
  Company Number: TW-BIOMARINAP-TW-2025-165288

PATIENT

DRUGS (1)
  1. KUVAN [Suspect]
     Active Substance: SAPROPTERIN DIHYDROCHLORIDE
     Indication: Foetal exposure during pregnancy
     Dosage: 900 MILLIGRAM, QD
     Route: 064
     Dates: start: 20180201

REACTIONS (2)
  - Foetal death [Fatal]
  - Foetal growth abnormality [Unknown]

NARRATIVE: CASE EVENT DATE: 20250411
